FAERS Safety Report 18772664 (Version 1)
Quarter: 2021Q1

REPORT INFORMATION
  Report Type: Spontaneous
  Country: US (occurrence: US)
  Receive Date: 20210121
  Receipt Date: 20210121
  Transmission Date: 20210419
  Serious: No
  Sender: FDA-Public Use
  Company Number: None

PATIENT
  Age: 33 Year
  Sex: Female

DRUGS (9)
  1. METHIMAZOLE. [Concomitant]
     Active Substance: METHIMAZOLE
  2. OMEPRAZOLE. [Concomitant]
     Active Substance: OMEPRAZOLE
  3. MIRENA [Suspect]
     Active Substance: LEVONORGESTREL
     Dates: start: 20170917, end: 20190827
  4. METOPROLOL. [Concomitant]
     Active Substance: METOPROLOL
  5. FOLIC ACID. [Concomitant]
     Active Substance: FOLIC ACID
  6. WELLBUTRIN [Concomitant]
     Active Substance: BUPROPION HYDROCHLORIDE
  7. METHOTREXATE. [Concomitant]
     Active Substance: METHOTREXATE
  8. HUMIRA [Concomitant]
     Active Substance: ADALIMUMAB
  9. MARAJAUNA [Concomitant]

REACTIONS (3)
  - Abdominal pain [None]
  - Complication associated with device [None]
  - Device dislocation [None]

NARRATIVE: CASE EVENT DATE: 20190814
